FAERS Safety Report 9960668 (Version 2)
Quarter: 2014Q1

REPORT INFORMATION
  Report Type: Spontaneous
  Country: US (occurrence: None)
  Receive Date: 20140228
  Receipt Date: 20140311
  Transmission Date: 20141002
  Serious: Yes (Other)
  Sender: FDA-Public Use
  Company Number: 2014-US-001210

PATIENT
  Age: 35 Year
  Sex: Female

DRUGS (10)
  1. XYREM [Suspect]
     Indication: WAXY FLEXIBILITY
     Route: 048
     Dates: start: 201308, end: 2013
  2. XYREM [Suspect]
     Indication: NARCOLEPSY
     Route: 048
     Dates: start: 201308, end: 2013
  3. CARDIZEM (DILTIAZEM HYDROCHLORIDE) [Concomitant]
  4. ZYRTEC (CETIRIZINE HYDROCHLORIDE) [Concomitant]
  5. CLOMIPRAMINE (CLOMIPRAMINE) [Concomitant]
  6. VITAMIN D (COLECALCIFEROL) [Concomitant]
  7. SIMPLE OMEGA COMPLEX 369 [Concomitant]
  8. FLUTICASONE (FLUTICASONE PROPIONATE) [Concomitant]
  9. METHYLPHENIDATE (METHYLPHENIDATE HYDROCHLORIDE) [Concomitant]
  10. ALBUTEROL (SALBUTAMOL SULFATE) [Concomitant]

REACTIONS (7)
  - Rheumatic fever [None]
  - Streptococcal endocarditis [None]
  - Cataplexy [None]
  - Treatment noncompliance [None]
  - Adverse event [None]
  - Pneumonia [None]
  - Fungal infection [None]
